FAERS Safety Report 4341148-X (Version None)
Quarter: 2004Q2

REPORT INFORMATION
  Report Type: 
  Country: None (occurrence: None)
  Receive Date: 20040419
  Receipt Date: 20040203
  Transmission Date: 20050107
  Serious: Yes (Hospitalization)
  Sender: FDA-Public Use
  Company Number: JP-GLAXOSMITHKLINE-B0322221A

PATIENT
  Age: 56 Year
  Sex: Male
  Weight: 73 kg

DRUGS (7)
  1. PAXIL [Suspect]
     Indication: DEPRESSION
     Route: 048
     Dates: start: 20020401, end: 20020924
  2. FLUVOXAMINE MALEATE [Suspect]
     Indication: DEPRESSION
     Route: 048
     Dates: start: 20020509, end: 20021015
  3. ETIZOLAM [Suspect]
     Indication: INSOMNIA
     Dosage: 1MG PER DAY
     Route: 048
     Dates: start: 20020729
  4. CLOXAZOLAM [Suspect]
     Indication: DEPRESSION
     Dosage: 1MG TWICE PER DAY
     Route: 048
     Dates: start: 20020805, end: 20021022
  5. TRAZODONE HCL [Concomitant]
     Indication: DEPRESSION
     Route: 048
     Dates: start: 20020227, end: 20020918
  6. PRAVASTATIN SODIUM [Concomitant]
     Indication: HYPERLIPIDAEMIA
     Dosage: 10MG PER DAY
     Route: 048
  7. MIANSERIN HYDROCHLORIDE [Concomitant]
     Indication: INSOMNIA
     Dosage: 30MG PER DAY
     Route: 065
     Dates: start: 20021011

REACTIONS (7)
  - CONDITION AGGRAVATED [None]
  - DEPRESSED LEVEL OF CONSCIOUSNESS [None]
  - DEPRESSION [None]
  - DRUG INTERACTION [None]
  - INSOMNIA [None]
  - MEMORY IMPAIRMENT [None]
  - SPEECH DISORDER [None]
